FAERS Safety Report 8614031-9 (Version None)
Quarter: 2012Q2

REPORT INFORMATION
  Report Type: 
  Country: None (occurrence: None)
  Receive Date: 20120423
  Receipt Date: 20090721
  Transmission Date: 20120825
  Serious: Yes (Other)
  Sender: FDA-Public Use
  Company Number: PHEH2009US04349

PATIENT
  Age: 80 Year
  Sex: Female

DRUGS (3)
  1. MIRALAX [Concomitant]
  2. EXJADE [Suspect]
     Indication: IRON OVERLOAD
     Dosage: 1250MG, QD, ORAL
     Route: 048
     Dates: start: 20090428, end: 20090629
  3. EXJADE [Suspect]
     Indication: IRON METABOLISM DISORDER
     Dosage: 1250MG, QD, ORAL
     Route: 048
     Dates: start: 20090428, end: 20090629

REACTIONS (5)
  - PAINFUL RESPIRATION [None]
  - PRURITUS [None]
  - PAIN [None]
  - DIARRHOEA [None]
  - MELAENA [None]
